FAERS Safety Report 6398359-1 (Version None)
Quarter: 2009Q4

REPORT INFORMATION
  Report Type: 
  Country: None (occurrence: None)
  Receive Date: 20091013
  Receipt Date: 20090930
  Transmission Date: 20100525
  Serious: Yes (Other)
  Sender: FDA-Public Use
  Company Number: GB-PFIZER INC-2009275984

PATIENT
  Age: 46 Year

DRUGS (7)
  1. CHAMPIX [Suspect]
     Indication: SMOKING CESSATION THERAPY
     Dosage: 0.5 MG, 2X/DAY
     Route: 048
     Dates: start: 20040728, end: 20090804
  2. ACETYLSALICYLIC ACID [Concomitant]
     Dosage: 75 MG, UNK
     Route: 048
  3. EZETIMIBE [Concomitant]
     Dosage: 10 MG, UNK
     Route: 048
  4. INSULIN ISOPHANE PORCINE [Concomitant]
     Indication: DIABETES MELLITUS
  5. LISINOPRIL [Concomitant]
     Dosage: 2.5 MG, UNK
     Route: 048
  6. NOVORAPID [Concomitant]
     Indication: DIABETES MELLITUS
     Dosage: UNK
  7. VENLAFAXINE [Concomitant]
     Indication: DEPRESSION
     Dosage: 300 MG, UNK
     Route: 048

REACTIONS (3)
  - APATHY [None]
  - ASTHENIA [None]
  - DEPRESSED MOOD [None]
